FAERS Safety Report 13571735 (Version 1)
Quarter: 2017Q2

REPORT INFORMATION
  Report Type: Spontaneous
  Country: US (occurrence: US)
  Receive Date: 20170522
  Receipt Date: 20170522
  Transmission Date: 20170830
  Serious: Yes (Other)
  Sender: FDA-Public Use
  Company Number: None

PATIENT
  Age: 57 Year
  Sex: Male
  Weight: 100.9 kg

DRUGS (1)
  1. LAMOTRIGINE. [Suspect]
     Active Substance: LAMOTRIGINE
     Indication: POST-TRAUMATIC STRESS DISORDER
     Route: 048
     Dates: start: 20151027, end: 20151113

REACTIONS (5)
  - Pharyngitis streptococcal [None]
  - Urticaria [None]
  - Throat tightness [None]
  - Vision blurred [None]
  - Rash [None]

NARRATIVE: CASE EVENT DATE: 20151113
